FAERS Safety Report 12945924 (Version 2)
Quarter: 2018Q3

REPORT INFORMATION
  Report Type: Spontaneous
  Country: CA (occurrence: CA)
  Receive Date: 20161115
  Receipt Date: 20180914
  Transmission Date: 20181010
  Serious: Yes (Hospitalization)
  Sender: FDA-Public Use
  Company Number: CA-ACTELION-A-US2016-144974

PATIENT
  Age: 17 Month
  Sex: Male

DRUGS (1)
  1. ZAVESCA [Suspect]
     Active Substance: MIGLUSTAT
     Indication: LIPIDOSIS
     Dosage: UNK
     Route: 048
     Dates: start: 201610

REACTIONS (4)
  - Retching [Not Recovered/Not Resolved]
  - Choking [Not Recovered/Not Resolved]
  - Disease progression [Not Recovered/Not Resolved]
  - Lipidosis [Not Recovered/Not Resolved]
